FAERS Safety Report 9151872 (Version 1)
Quarter: 2013Q1

REPORT INFORMATION
  Report Type: Report from Study
  Country: JP (occurrence: JP)
  Receive Date: 20130308
  Receipt Date: 20130308
  Transmission Date: 20140127
  Serious: Yes (Hospitalization)
  Sender: FDA-Public Use
  Company Number: JP-GLAXOSMITHKLINE-B0631337A

PATIENT
  Age: 4 Year
  Sex: Male
  Weight: 14.2 kg

DRUGS (60)
  1. ARRANON [Suspect]
     Indication: T-CELL TYPE ACUTE LEUKAEMIA
     Dosage: 650MGM2 PER DAY
     Route: 042
     Dates: start: 20090716, end: 20090720
  2. ARRANON [Suspect]
     Indication: T-CELL TYPE ACUTE LEUKAEMIA
     Dosage: 650MGM2 PER DAY
     Route: 042
     Dates: start: 20090806, end: 20090808
  3. CYTARABINE [Concomitant]
     Indication: NEOPLASM MALIGNANT
     Dates: start: 20090702, end: 20090704
  4. ETOPOSIDE [Concomitant]
     Indication: NEOPLASM MALIGNANT
     Dates: start: 20090702, end: 20090706
  5. IDARUBICIN [Concomitant]
     Indication: NEOPLASM MALIGNANT
     Dates: start: 20090702, end: 20090702
  6. SOLDEM 3A [Concomitant]
     Indication: FLUID REPLACEMENT
     Dates: start: 20090630, end: 20091011
  7. MEYLON [Concomitant]
     Indication: PROPHYLAXIS
     Dates: start: 20090630, end: 20091011
  8. POTASSIUM CL [Concomitant]
     Indication: ELECTROLYTE SUBSTITUTION THERAPY
     Dates: start: 20090702, end: 20090718
  9. KAYTWO N [Concomitant]
     Indication: HEPAPLASTIN DECREASED
     Dates: start: 20090711, end: 20090724
  10. KAYTWO N [Concomitant]
     Indication: HEPAPLASTIN DECREASED
     Dates: start: 20090805, end: 20091011
  11. ZOSYN [Concomitant]
     Indication: INFECTION
     Route: 042
     Dates: start: 20090710, end: 20090805
  12. MODACIN [Concomitant]
     Indication: INFECTION
     Route: 042
     Dates: start: 20090710, end: 20090728
  13. ISOTONIC SODIUM CHLORIDE SOLUTION [Concomitant]
     Dates: start: 20090710, end: 20090805
  14. ISOTONIC SODIUM CHLORIDE SOLUTION [Concomitant]
     Dates: start: 20090807, end: 20090807
  15. ISOTONIC SODIUM CHLORIDE SOLUTION [Concomitant]
     Dates: start: 20090807, end: 20091011
  16. ISOTONIC SODIUM CHLORIDE SOLUTION [Concomitant]
     Dates: start: 20090808, end: 20090808
  17. NEO-MINOPHAGEN-C [Concomitant]
     Indication: HEPATIC FUNCTION ABNORMAL
     Dates: start: 20090710, end: 20091011
  18. NEUART [Concomitant]
     Indication: ANTITHROMBIN III DECREASED
     Dates: start: 20090715, end: 20090720
  19. NEUART [Concomitant]
     Indication: ANTITHROMBIN III DECREASED
     Dates: start: 20090807, end: 20090809
  20. ZOFRAN [Concomitant]
     Indication: VOMITING
     Dates: start: 20090716, end: 20090720
  21. ZOFRAN [Concomitant]
     Indication: VOMITING
     Dates: start: 20090806, end: 20090808
  22. DIBASIC POTASSIUM PHOSPHATE [Concomitant]
     Indication: ELECTROLYTE SUBSTITUTION THERAPY
     Dates: start: 20090718, end: 20090719
  23. NEOLAMIN [Concomitant]
     Indication: VITAMIN SUPPLEMENTATION
     Dates: start: 20090723, end: 20091011
  24. FUROSEMIDE [Concomitant]
     Indication: POLYURIA
     Dates: start: 20090807, end: 20090807
  25. GASTER [Concomitant]
     Indication: ABDOMINAL PAIN UPPER
     Dates: start: 20090807, end: 20091011
  26. PENTAZOCINE [Concomitant]
     Indication: ANALGESIC THERAPY
     Dates: start: 20090808, end: 20090808
  27. ATARAX-P [Concomitant]
     Indication: ANALGESIC THERAPY
     Dates: start: 20090808, end: 20090808
  28. RED CELL CONCENTRATE [Concomitant]
     Indication: TRANSFUSION
     Dates: start: 20090721, end: 20090721
  29. RED CELL CONCENTRATE [Concomitant]
     Indication: TRANSFUSION
     Dates: start: 20090725, end: 20090725
  30. RED CELL CONCENTRATE [Concomitant]
     Indication: TRANSFUSION
     Dates: start: 20090729, end: 20090729
  31. PLATELET CONCENTRATE [Concomitant]
     Indication: TRANSFUSION
     Dates: start: 20090716, end: 20090716
  32. PLATELET CONCENTRATE [Concomitant]
     Indication: TRANSFUSION
     Dates: start: 20090718, end: 20090718
  33. PLATELET CONCENTRATE [Concomitant]
     Indication: TRANSFUSION
     Dates: start: 20090720, end: 20090720
  34. PLATELET CONCENTRATE [Concomitant]
     Indication: TRANSFUSION
     Dates: start: 20090722, end: 20090722
  35. PLATELET CONCENTRATE [Concomitant]
     Indication: TRANSFUSION
     Dates: start: 20090724, end: 20090724
  36. PLATELET CONCENTRATE [Concomitant]
     Indication: TRANSFUSION
     Dates: start: 20090726, end: 20090726
  37. PLATELET CONCENTRATE [Concomitant]
     Indication: TRANSFUSION
     Dates: start: 20090728, end: 20090728
  38. PLATELET CONCENTRATE [Concomitant]
     Indication: TRANSFUSION
     Dates: start: 20090730, end: 20090730
  39. PLATELET CONCENTRATE [Concomitant]
     Indication: TRANSFUSION
     Dates: start: 20090801, end: 20090801
  40. PLATELET CONCENTRATE [Concomitant]
     Indication: TRANSFUSION
     Dates: start: 20090803, end: 20090803
  41. PLATELET CONCENTRATE [Concomitant]
     Indication: TRANSFUSION
     Dates: start: 20090805, end: 20090805
  42. PLATELET CONCENTRATE [Concomitant]
     Indication: TRANSFUSION
     Dates: start: 20090807, end: 20090807
  43. PLATELET CONCENTRATE [Concomitant]
     Indication: TRANSFUSION
     Dates: start: 20090809, end: 20090809
  44. CHLOR-TRIMETON [Concomitant]
     Indication: ALLERGY PROPHYLAXIS
     Dates: start: 20090716, end: 20090716
  45. CHLOR-TRIMETON [Concomitant]
     Indication: ALLERGY PROPHYLAXIS
     Dates: start: 20090718, end: 20090718
  46. CHLOR-TRIMETON [Concomitant]
     Indication: ALLERGY PROPHYLAXIS
     Dates: start: 20090720, end: 20090720
  47. CHLOR-TRIMETON [Concomitant]
     Indication: ALLERGY PROPHYLAXIS
     Dates: start: 20090722, end: 20090722
  48. CHLOR-TRIMETON [Concomitant]
     Indication: ALLERGY PROPHYLAXIS
     Dates: start: 20090724, end: 20090724
  49. CHLOR-TRIMETON [Concomitant]
     Indication: ALLERGY PROPHYLAXIS
     Dates: start: 20090726, end: 20090726
  50. CHLOR-TRIMETON [Concomitant]
     Indication: ALLERGY PROPHYLAXIS
     Dates: start: 20090728, end: 20090728
  51. CHLOR-TRIMETON [Concomitant]
     Indication: ALLERGY PROPHYLAXIS
     Dates: start: 20090730, end: 20090730
  52. CHLOR-TRIMETON [Concomitant]
     Indication: ALLERGY PROPHYLAXIS
     Dates: start: 20090801, end: 20090801
  53. CHLOR-TRIMETON [Concomitant]
     Indication: ALLERGY PROPHYLAXIS
     Dates: start: 20090803, end: 20090803
  54. CHLOR-TRIMETON [Concomitant]
     Indication: ALLERGY PROPHYLAXIS
     Dates: start: 20090805, end: 20090805
  55. CHLOR-TRIMETON [Concomitant]
     Indication: ALLERGY PROPHYLAXIS
     Dates: start: 20090807, end: 20090807
  56. CHLOR-TRIMETON [Concomitant]
     Indication: ALLERGY PROPHYLAXIS
     Dates: start: 20090809, end: 20090809
  57. BAKTAR [Concomitant]
     Indication: INFECTION PROPHYLAXIS
     Route: 048
     Dates: start: 20071109, end: 20091010
  58. FUNGIZONE [Concomitant]
     Indication: INFECTION PROPHYLAXIS
     Route: 048
     Dates: start: 20071109, end: 20091010
  59. ZYLORIC [Concomitant]
     Indication: HYPERURICAEMIA
     Route: 048
     Dates: start: 20081206, end: 20091010
  60. ITRIZOLE [Concomitant]
     Indication: BLOOD BETA-D-GLUCAN
     Dates: start: 20090624, end: 20091010

REACTIONS (6)
  - Headache [Recovered/Resolved]
  - Restlessness [Recovered/Resolved]
  - Nystagmus [Recovering/Resolving]
  - Feeling abnormal [Recovered/Resolved]
  - Dysarthria [Recovered/Resolved]
  - Eyelid ptosis [Recovered/Resolved]
